FAERS Safety Report 6132237-8 (Version None)
Quarter: 2009Q1

REPORT INFORMATION
  Report Type: 
  Country: None (occurrence: None)
  Receive Date: 20090325
  Receipt Date: 20090313
  Transmission Date: 20090719
  Serious: Yes (Hospitalization)
  Sender: FDA-Public Use
  Company Number: IT-PFIZER INC-2009182814

PATIENT

DRUGS (3)
  1. BLINDED *PLACEBO [Suspect]
     Indication: ASPERGILLOSIS
     Dosage: 280 ML, 1X/DAY
     Route: 042
     Dates: start: 20090205, end: 20090218
  2. BLINDED ANIDULAFUNGIN [Suspect]
     Indication: ASPERGILLOSIS
     Dosage: 280 ML, 1X/DAY
     Route: 042
     Dates: start: 20090205, end: 20090218
  3. VORICONAZOLE [Suspect]
     Indication: ASPERGILLOSIS
     Route: 048
     Dates: start: 20090205, end: 20090220

REACTIONS (2)
  - DISEASE PROGRESSION [None]
  - LYMPHOMA [None]
